FAERS Safety Report 18061820 (Version 5)
Quarter: 2020Q3

REPORT INFORMATION
  Report Type: Report from Study
  Country: US (occurrence: US)
  Receive Date: 20200723
  Receipt Date: 20200820
  Transmission Date: 20201103
  Serious: Yes (Other)
  Sender: FDA-Public Use
  Company Number: US-GLAXOSMITHKLINE-US2020AMR137674

PATIENT
  Sex: Female

DRUGS (3)
  1. NIRAPARIB [Suspect]
     Active Substance: NIRAPARIB
     Indication: OVARIAN CANCER
     Dosage: 200 MG, QD
     Dates: start: 20200713, end: 20200803
  2. METOPROLOL. [Concomitant]
     Active Substance: METOPROLOL
     Dosage: 100 MG
  3. METOPROLOL. [Concomitant]
     Active Substance: METOPROLOL
     Indication: BLOOD PRESSURE INCREASED
     Dosage: UNK

REACTIONS (13)
  - Contusion [Unknown]
  - Adverse drug reaction [Unknown]
  - Muscular weakness [Not Recovered/Not Resolved]
  - Neuropathy peripheral [Not Recovered/Not Resolved]
  - Headache [Not Recovered/Not Resolved]
  - Off label use [Unknown]
  - Nausea [Not Recovered/Not Resolved]
  - Condition aggravated [Unknown]
  - Insomnia [Not Recovered/Not Resolved]
  - Fatigue [Not Recovered/Not Resolved]
  - Constipation [Not Recovered/Not Resolved]
  - Platelet count decreased [Not Recovered/Not Resolved]
  - Blood pressure increased [Recovered/Resolved]
